FAERS Safety Report 23148253 (Version 2)
Quarter: 2023Q4

REPORT INFORMATION
  Report Type: Report from Study
  Country: US (occurrence: None)
  Receive Date: 20231106
  Receipt Date: 20231226
  Transmission Date: 20240110
  Serious: Yes (Other)
  Sender: FDA-Public Use
  Company Number: 2023A250435

PATIENT
  Sex: Female

DRUGS (1)
  1. FASENRA [Suspect]
     Active Substance: BENRALIZUMAB
     Route: 058

REACTIONS (5)
  - Emphysema [Unknown]
  - Condition aggravated [Unknown]
  - Malaise [Unknown]
  - Cough [Unknown]
  - Dysphonia [Unknown]
